FAERS Safety Report 9473891 (Version 1)
Quarter: 2013Q3

REPORT INFORMATION
  Report Type: Spontaneous
  Country: GB (occurrence: GB)
  Receive Date: 20130823
  Receipt Date: 20130823
  Transmission Date: 20140515
  Serious: Yes (Other)
  Sender: FDA-Public Use
  Company Number: PHHY2013GB088019

PATIENT
  Sex: Female

DRUGS (2)
  1. CO-CODAMOL [Suspect]
  2. PARACETAMOL [Suspect]
     Indication: HEADACHE
     Route: 048

REACTIONS (1)
  - Dizziness [Not Recovered/Not Resolved]
